FAERS Safety Report 22272318 (Version 3)
Quarter: 2023Q2

REPORT INFORMATION
  Report Type: Spontaneous
  Country: DE (occurrence: DE)
  Receive Date: 20230502
  Receipt Date: 20230627
  Transmission Date: 20230722
  Serious: Yes (Other)
  Sender: FDA-Public Use
  Company Number: DE-BRISTOL-MYERS SQUIBB COMPANY-2023-061980

PATIENT
  Age: 72 Year
  Sex: Male
  Weight: 80 kg

DRUGS (2)
  1. SPRYCEL [Suspect]
     Active Substance: DASATINIB
     Indication: Chronic myeloid leukaemia
     Dosage: DOSE : 100MG;     FREQ : DAILY
     Route: 048
     Dates: start: 2010
  2. ASPIRIN [Suspect]
     Active Substance: ASPIRIN
     Indication: Hypertension

REACTIONS (5)
  - Haemoglobin decreased [Unknown]
  - Blood cholesterol increased [Unknown]
  - Hypertension [Unknown]
  - Prostate cancer [Unknown]
  - Renal impairment [Unknown]

NARRATIVE: CASE EVENT DATE: 20210401
